FAERS Safety Report 6282366-3 (Version None)
Quarter: 2009Q3

REPORT INFORMATION
  Report Type: 
  Country: None (occurrence: None)
  Receive Date: 20090721
  Receipt Date: 20090721
  Transmission Date: 20100115
  Serious: Yes (Disabling, Other)
  Sender: FDA-Public Use
  Company Number: None

PATIENT
  Age: 42 Year
  Sex: Female
  Weight: 81.6475 kg

DRUGS (2)
  1. BUPROPION HCL [Suspect]
     Indication: ANXIETY
     Dosage: 300 MG DAILY PO
     Route: 048
     Dates: start: 20090101, end: 20090718
  2. BUPROPION HCL [Suspect]
     Indication: DEPRESSION
     Dosage: 300 MG DAILY PO
     Route: 048
     Dates: start: 20090101, end: 20090718

REACTIONS (9)
  - ANXIETY [None]
  - ARNOLD-CHIARI MALFORMATION [None]
  - ASTHENIA [None]
  - FATIGUE [None]
  - FEELING ABNORMAL [None]
  - HEADACHE [None]
  - MEMORY IMPAIRMENT [None]
  - PRODUCT SUBSTITUTION ISSUE [None]
  - SOMNOLENCE [None]
